FAERS Safety Report 9518416 (Version 3)
Quarter: 2013Q4

REPORT INFORMATION
  Report Type: Spontaneous
  Country: BR (occurrence: BR)
  Receive Date: 20130912
  Receipt Date: 20131008
  Transmission Date: 20140711
  Serious: Yes (Hospitalization, Other)
  Sender: FDA-Public Use
  Company Number: BR-JNJFOC-20130902690

PATIENT
  Age: 55 Year
  Sex: Female
  Weight: 46.5 kg

DRUGS (7)
  1. REMICADE [Suspect]
     Indication: CROHN^S DISEASE
     Route: 042
     Dates: start: 201305
  2. REMICADE [Suspect]
     Indication: CROHN^S DISEASE
     Route: 042
     Dates: start: 20130906
  3. REMICADE [Suspect]
     Indication: CROHN^S DISEASE
     Route: 042
     Dates: start: 20130705
  4. AZATHIOPRINE [Concomitant]
     Indication: CROHN^S DISEASE
     Route: 065
     Dates: start: 201304
  5. SACCHAROMYCES BOULARDII [Concomitant]
     Indication: UNEVALUABLE EVENT
     Route: 065
  6. ZOLPIDEM [Concomitant]
     Indication: SLEEP DISORDER
     Route: 065
     Dates: start: 201309
  7. BROMAZEPAM [Concomitant]
     Indication: SLEEP DISORDER
     Route: 065
     Dates: end: 201309

REACTIONS (10)
  - Intestinal haemorrhage [Recovered/Resolved]
  - Gastritis bacterial [Not Recovered/Not Resolved]
  - Painful defaecation [Not Recovered/Not Resolved]
  - Gastrooesophageal reflux disease [Not Recovered/Not Resolved]
  - Alopecia [Not Recovered/Not Resolved]
  - Pain [Unknown]
  - Insomnia [Unknown]
  - Malaise [Unknown]
  - Asthenia [Not Recovered/Not Resolved]
  - Sensory disturbance [Not Recovered/Not Resolved]
